FAERS Safety Report 9251517 (Version 1)
Quarter: 2013Q1

REPORT INFORMATION
  Report Type: Spontaneous
  Country: US (occurrence: None)
  Receive Date: 20130305
  Receipt Date: 20130305
  Transmission Date: 20140127
  Serious: Yes (Hospitalization, Other)
  Sender: FDA-Public Use
  Company Number: 163-21880-12063464

PATIENT
  Age: 58 Year
  Sex: Male

DRUGS (4)
  1. REVLIMID (LENALIDOMIDE) (CAPSULES) [Suspect]
     Indication: PLASMA CELL MYELOMA
     Dosage: 21 IN 21 D
     Route: 048
     Dates: start: 20120503, end: 201207
  2. ASPIRIN (ACETYLSALICYLIC ACID) [Suspect]
  3. ECOTRIN (ACETYLSALICYLIC ACID) [Suspect]
  4. VICODIN (VICODIN) [Suspect]

REACTIONS (1)
  - Pneumonia [None]
